FAERS Safety Report 12138405 (Version 6)
Quarter: 2016Q2

REPORT INFORMATION
  Report Type: Report from Study
  Country: US (occurrence: US)
  Receive Date: 20160302
  Receipt Date: 20160601
  Transmission Date: 20160815
  Serious: Yes (Hospitalization, Other)
  Sender: FDA-Public Use
  Company Number: US-GILEAD-2016-0200942

PATIENT
  Age: 47 Year
  Sex: Female
  Weight: 60 kg

DRUGS (5)
  1. AMBRISENTAN [Suspect]
     Active Substance: AMBRISENTAN
     Indication: PULMONARY HYPERTENSION
     Dosage: 5 MG, QD
     Route: 065
     Dates: start: 20160216, end: 20160221
  2. KCL [Concomitant]
     Active Substance: POTASSIUM CHLORIDE
  3. PANTOPRAZOLE [Concomitant]
     Active Substance: PANTOPRAZOLE SODIUM
  4. AMBRISENTAN [Suspect]
     Active Substance: AMBRISENTAN
     Indication: PORTOPULMONARY HYPERTENSION
  5. ADCIRCA [Concomitant]
     Active Substance: TADALAFIL

REACTIONS (9)
  - Back pain [Unknown]
  - Cardiac failure [Unknown]
  - Dyspnoea [Unknown]
  - Anaemia [Recovered/Resolved]
  - Gastrointestinal haemorrhage [Unknown]
  - Epistaxis [Recovered/Resolved]
  - Oedema peripheral [Unknown]
  - Fatigue [Recovered/Resolved]
  - Headache [Recovered/Resolved]

NARRATIVE: CASE EVENT DATE: 20160218
